FAERS Safety Report 5372350-6 (Version None)
Quarter: 2007Q2

REPORT INFORMATION
  Report Type: 
  Country: None (occurrence: None)
  Receive Date: 20070627
  Receipt Date: 20070621
  Transmission Date: 20071010
  Serious: Yes (Hospitalization)
  Sender: FDA-Public Use
  Company Number: FR-BRISTOL-MYERS SQUIBB COMPANY-13812599

PATIENT
  Age: 76 Year
  Sex: Female

DRUGS (14)
  1. GLUCOPHAGE [Suspect]
     Indication: DIABETES MELLITUS
     Dates: end: 20070224
  2. HYTACAND [Suspect]
     Route: 048
     Dates: end: 20070223
  3. LASIX [Suspect]
     Route: 048
     Dates: end: 20070224
  4. ORBENIN CAP [Suspect]
     Indication: SEPSIS
     Route: 042
     Dates: start: 20070212, end: 20070223
  5. FORLAX [Concomitant]
  6. PREVISCAN [Concomitant]
  7. ZOLOFT [Concomitant]
  8. LORAZEPAM [Concomitant]
  9. DIFFU-K [Concomitant]
  10. NEXIUM [Concomitant]
  11. AMLODIPINE [Concomitant]
  12. NEULEPTIL [Concomitant]
  13. GENTAMICIN [Concomitant]
     Indication: SEPSIS
  14. TRAMADOL HCL [Concomitant]

REACTIONS (2)
  - RENAL FAILURE ACUTE [None]
  - SEPSIS [None]
